FAERS Safety Report 5477397-7 (Version None)
Quarter: 2007Q4

REPORT INFORMATION
  Report Type: 
  Country: None (occurrence: None)
  Receive Date: 20071004
  Receipt Date: 20070925
  Transmission Date: 20080405
  Serious: Yes (Other)
  Sender: FDA-Public Use
  Company Number: BR-ABBOTT-07P-020-0418588-00

PATIENT
  Sex: Female
  Weight: 58 kg

DRUGS (3)
  1. HUMIRA [Suspect]
     Indication: RHEUMATOID ARTHRITIS
     Route: 058
     Dates: start: 20050101, end: 20061002
  2. HUMIRA [Suspect]
     Dates: start: 20061201
  3. UNKNOWN ANTI-INFLAMMATORY [Concomitant]
     Indication: DRUG USE FOR UNKNOWN INDICATION
     Route: 048
     Dates: start: 20061017, end: 20070101

REACTIONS (5)
  - ABSCESS [None]
  - BUNION [None]
  - INFLAMMATION [None]
  - PAIN [None]
  - SKIN LACERATION [None]
